FAERS Safety Report 11225033 (Version 3)
Quarter: 2015Q3

REPORT INFORMATION
  Report Type: Spontaneous
  Country: ES (occurrence: ES)
  Receive Date: 20150629
  Receipt Date: 20150828
  Transmission Date: 20151125
  Serious: Yes (Death, Hospitalization)
  Sender: FDA-Public Use
  Company Number: ES-UNITED THERAPEUTICS-UNT-2015-007483

PATIENT
  Age: 4 Year
  Sex: Female
  Weight: 13.7 kg

DRUGS (9)
  1. UNITUXIN [Suspect]
     Active Substance: DINUTUXIMAB
     Indication: NEUROBLASTOMA
     Dosage: 42 MG, UNK
     Route: 041
     Dates: start: 20150504
  2. IMMUNOGLOBULIN                     /00025201/ [Concomitant]
     Active Substance: HUMAN IMMUNOGLOBULIN G
     Indication: HISTIOCYTOSIS HAEMATOPHAGIC
     Dosage: 10 G TOTAL DAILY DOSE
     Route: 042
     Dates: start: 20150522
  3. CIDOFOVIR. [Concomitant]
     Active Substance: CIDOFOVIR
     Indication: ADENOVIRUS INFECTION
     Dosage: 75 MG, TOTAL DAILY DOSE
     Route: 042
     Dates: start: 20150523, end: 20150523
  4. ALBUMIN (HUMAN). [Concomitant]
     Active Substance: ALBUMIN (HUMAN)
     Indication: HYPOALBUMINAEMIA
     Dosage: 10 G, TOTAL DAILY DOSE
     Route: 042
     Dates: start: 20150522, end: 20150524
  5. SARGRAMOSTIM [Suspect]
     Active Substance: SARGRAMOSTIM
     Indication: NEUROBLASTOMA
     Dosage: 2100 ?G, UNK
     Dates: start: 20150501
  6. PROSENTIO [Concomitant]
     Indication: ADENOVIRUS INFECTION
     Dosage: 1500 MG, TOTAL DAILY DOSE
     Route: 048
     Dates: start: 20150523, end: 20150523
  7. METRONIDAZOLE                      /00012502/ [Concomitant]
     Indication: ANTIBIOTIC THERAPY
     Dosage: 250 MG, TOTAL DAILY DOSE
     Route: 048
     Dates: start: 20150521, end: 20150527
  8. METHYLPREDNISOLONE                 /00049602/ [Concomitant]
     Active Substance: METHYLPREDNISOLONE
     Indication: HISTIOCYTOSIS HAEMATOPHAGIC
     Dosage: 420 MG TOTAL DAILY DOSE
     Route: 042
     Dates: start: 20150522, end: 20150524
  9. ISOTRETINOIN [Suspect]
     Active Substance: ISOTRETINOIN
     Indication: NEUROBLASTOMA
     Dosage: 500 MG, UNK
     Dates: start: 20150511

REACTIONS (2)
  - Histiocytosis haematophagic [Fatal]
  - Adenovirus infection [Fatal]

NARRATIVE: CASE EVENT DATE: 20150519
